FAERS Safety Report 22206632 (Version 1)
Quarter: 2023Q2

REPORT INFORMATION
  Report Type: Spontaneous
  Country: US (occurrence: None)
  Receive Date: 20230412
  Receipt Date: 20230412
  Transmission Date: 20230721
  Serious: No
  Sender: FDA-Public Use
  Company Number: None

PATIENT
  Age: 45 Year
  Sex: Female

DRUGS (1)
  1. MIRVASO [Suspect]
     Active Substance: BRIMONIDINE TARTRATE
     Indication: Rosacea
     Dates: start: 20230411, end: 20230412

REACTIONS (5)
  - Rosacea [None]
  - Condition aggravated [None]
  - Migraine [None]
  - Rebound effect [None]
  - Economic problem [None]

NARRATIVE: CASE EVENT DATE: 20230412
